APPROVED DRUG PRODUCT: MORPHINE SULFATE
Active Ingredient: MORPHINE SULFATE
Strength: 50MG
Dosage Form/Route: CAPSULE, EXTENDED RELEASE;ORAL
Application: A200812 | Product #003
Applicant: STRIDES PHARMA INTERNATIONAL AG
Approved: Nov 10, 2011 | RLD: No | RS: No | Type: DISCN